FAERS Safety Report 5790088-8 (Version None)
Quarter: 2008Q2

REPORT INFORMATION
  Report Type: 
  Country: None (occurrence: None)
  Receive Date: 20080626
  Receipt Date: 20080507
  Transmission Date: 20081010
  Serious: No
  Sender: FDA-Public Use
  Company Number: A0672600A

PATIENT
  Sex: Female
  Weight: 85.9 kg

DRUGS (1)
  1. ALLI [Suspect]
     Indication: DRUG USE FOR UNKNOWN INDICATION
     Route: 048

REACTIONS (32)
  - ABDOMINAL DISTENSION [None]
  - ARTHRALGIA [None]
  - CHILLS [None]
  - CHONDRITIS [None]
  - CONSTIPATION [None]
  - DEPRESSION [None]
  - DISCOMFORT [None]
  - DRUG INEFFECTIVE [None]
  - FEELING ABNORMAL [None]
  - FLUID RETENTION [None]
  - FRUSTRATION [None]
  - GASTROINTESTINAL DISORDER [None]
  - HEADACHE [None]
  - ILL-DEFINED DISORDER [None]
  - INFLUENZA [None]
  - MALAISE [None]
  - MENSTRUATION IRREGULAR [None]
  - MIGRAINE [None]
  - MUSCLE INJURY [None]
  - MUSCULOSKELETAL CHEST PAIN [None]
  - MUSCULOSKELETAL DISCOMFORT [None]
  - NASOPHARYNGITIS [None]
  - OEDEMA PERIPHERAL [None]
  - PAIN [None]
  - PAIN IN EXTREMITY [None]
  - PHARYNGOLARYNGEAL PAIN [None]
  - RECTAL DISCHARGE [None]
  - SOFT TISSUE INJURY [None]
  - THERAPEUTIC RESPONSE UNEXPECTED [None]
  - THROAT IRRITATION [None]
  - TREMOR [None]
  - WEIGHT INCREASED [None]
